FAERS Safety Report 18979776 (Version 1)
Quarter: 2021Q1

REPORT INFORMATION
  Report Type: Spontaneous
  Country: NO (occurrence: NO)
  Receive Date: 20210308
  Receipt Date: 20210308
  Transmission Date: 20210420
  Serious: Yes (Other)
  Sender: FDA-Public Use
  Company Number: NO-PFIZER INC-2021113864

PATIENT
  Age: 35 Year
  Sex: Female

DRUGS (5)
  1. FOLIC ACID. [Concomitant]
     Active Substance: FOLIC ACID
  2. IODINE. [Concomitant]
     Active Substance: IODINE
  3. SYNARELA [Suspect]
     Active Substance: NAFARELIN ACETATE
     Indication: IN VITRO FERTILISATION
     Route: 045
     Dates: start: 20201116, end: 20201213
  4. VITAMIN D [VITAMIN D NOS] [Concomitant]
     Active Substance: VITAMIN D NOS
  5. VITAMIN B12 [Concomitant]
     Active Substance: CYANOCOBALAMIN

REACTIONS (2)
  - Headache [Recovered/Resolved]
  - Bradycardia [Recovered/Resolved]

NARRATIVE: CASE EVENT DATE: 20201118
